FAERS Safety Report 24277266 (Version 1)
Quarter: 2024Q3

REPORT INFORMATION
  Report Type: Spontaneous
  Country: CN (occurrence: CN)
  Receive Date: 20240903
  Receipt Date: 20240903
  Transmission Date: 20241016
  Serious: Yes (Other)
  Sender: SANOFI AVENTIS
  Company Number: CN-SA-2024SA254100

PATIENT
  Age: 77 Year
  Sex: Male
  Weight: 47 kg

DRUGS (17)
  1. ELOXATIN [Suspect]
     Active Substance: OXALIPLATIN
     Indication: Chemotherapy
     Dosage: 150 MG, QD
     Route: 041
     Dates: start: 20240726, end: 20240726
  2. ELOXATIN [Suspect]
     Active Substance: OXALIPLATIN
     Indication: Gastric cancer
     Dosage: 150 MG;D1
     Route: 041
     Dates: start: 20240414
  3. ELOXATIN [Suspect]
     Active Substance: OXALIPLATIN
     Dosage: 150 MG;D1
     Route: 041
     Dates: start: 20240509
  4. ELOXATIN [Suspect]
     Active Substance: OXALIPLATIN
     Dosage: 150 MG;D1
     Route: 041
     Dates: start: 20240603
  5. ELOXATIN [Suspect]
     Active Substance: OXALIPLATIN
     Dosage: 150 MG;D1
     Route: 041
     Dates: start: 20240628
  6. CAPECITABINE [Suspect]
     Active Substance: CAPECITABINE
     Indication: Gastric cancer
     Dosage: 1 G, BID
     Route: 048
     Dates: start: 20240726, end: 20240726
  7. CAPECITABINE [Suspect]
     Active Substance: CAPECITABINE
     Indication: Chemotherapy
     Dosage: 1 G, BID;D2-15
     Route: 048
     Dates: start: 20240414
  8. CAPECITABINE [Suspect]
     Active Substance: CAPECITABINE
     Dosage: 1 G, BID;D2-15
     Route: 048
     Dates: start: 20240509
  9. CAPECITABINE [Suspect]
     Active Substance: CAPECITABINE
     Dosage: 1 G, BID;D2-15
     Route: 048
     Dates: start: 20240603
  10. CAPECITABINE [Suspect]
     Active Substance: CAPECITABINE
     Dosage: 1 G, BID;D2-15
     Route: 048
     Dates: start: 20240628
  11. SINTILIMAB [Suspect]
     Active Substance: SINTILIMAB
     Indication: Gastric cancer
     Dosage: 140 MG, QD
     Route: 041
     Dates: start: 20240725, end: 20240725
  12. SINTILIMAB [Suspect]
     Active Substance: SINTILIMAB
     Dosage: 140 MG
     Dates: start: 20240413
  13. SINTILIMAB [Suspect]
     Active Substance: SINTILIMAB
     Dosage: 140 MG
     Dates: start: 20240508
  14. SINTILIMAB [Suspect]
     Active Substance: SINTILIMAB
     Dosage: 140 MG
     Dates: start: 20240602
  15. SINTILIMAB [Suspect]
     Active Substance: SINTILIMAB
     Dosage: 140 MG
     Dates: start: 20240627
  16. SODIUM CHLORIDE [Concomitant]
     Active Substance: SODIUM CHLORIDE
     Indication: Medication dilution
     Dosage: 100 ML, QD
     Route: 041
     Dates: start: 20240725, end: 20240725
  17. DEXTROSE [Concomitant]
     Active Substance: DEXTROSE\DEXTROSE MONOHYDRATE
     Indication: Medication dilution
     Dosage: 250 ML, QD
     Route: 041
     Dates: start: 20240726, end: 20240726

REACTIONS (3)
  - Immune-mediated lung disease [Unknown]
  - Hyperpyrexia [Unknown]
  - COVID-19 [Unknown]

NARRATIVE: CASE EVENT DATE: 20240726
